FAERS Safety Report 17881420 (Version 1)
Quarter: 2020Q2

REPORT INFORMATION
  Report Type: Spontaneous
  Country: US (occurrence: US)
  Receive Date: 20200610
  Receipt Date: 20200610
  Transmission Date: 20200714
  Serious: No
  Sender: FDA-Public Use
  Company Number: US-COLLEGIUM PHARMACEUTICAL, INC.-2019CGM00149

PATIENT
  Age: 49 Year
  Sex: Female
  Weight: 117.91 kg

DRUGS (7)
  1. XTAMPZA ER [Suspect]
     Active Substance: OXYCODONE
     Dosage: 9 MG, 2X/DAY
     Route: 048
     Dates: start: 20190509, end: 20190509
  2. OXCARBAZEPINE. [Concomitant]
     Active Substance: OXCARBAZEPINE
  3. XTAMPZA ER [Suspect]
     Active Substance: OXYCODONE
     Indication: PAIN
     Dosage: UNK
     Dates: start: 201808, end: 201808
  4. ASPIRIN. [Concomitant]
     Active Substance: ASPIRIN
  5. TIZANIDINE. [Concomitant]
     Active Substance: TIZANIDINE
  6. ESTRADIOL. [Concomitant]
     Active Substance: ESTRADIOL
  7. SIMVASTATIN. [Concomitant]
     Active Substance: SIMVASTATIN

REACTIONS (3)
  - Wrong technique in product usage process [Recovered/Resolved]
  - Middle insomnia [Recovered/Resolved]
  - Gluten sensitivity [Recovering/Resolving]

NARRATIVE: CASE EVENT DATE: 201808
